FAERS Safety Report 10866956 (Version 1)
Quarter: 2015Q1

REPORT INFORMATION
  Report Type: Spontaneous
  Country: US (occurrence: US)
  Receive Date: 20150225
  Receipt Date: 20150225
  Transmission Date: 20150721
  Serious: No
  Sender: FDA-Public Use
  Company Number: US-PFIZER INC-2015039236

PATIENT
  Sex: Female
  Weight: 66 kg

DRUGS (4)
  1. GABAPENTIN. [Suspect]
     Active Substance: GABAPENTIN
     Indication: SCIATIC NERVE NEUROPATHY
     Dosage: 100 MG,  FIRST WEEK TAKE ONE TABLET AT BEDTIME
  2. GABAPENTIN. [Suspect]
     Active Substance: GABAPENTIN
     Dosage: 300 MG, 3X/DAY
  3. HORIZON [Suspect]
     Active Substance: DIAZEPAM
     Indication: SCIATIC NERVE NEUROPATHY
     Dosage: 600 MG, 3X/DAY
  4. GABAPENTIN. [Suspect]
     Active Substance: GABAPENTIN
     Dosage: 100 MG, 2X/DAY

REACTIONS (1)
  - Drug ineffective for unapproved indication [Unknown]
